FAERS Safety Report 8606028-X (Version None)
Quarter: 2012Q3

REPORT INFORMATION
  Report Type: 
  Country: None (occurrence: None)
  Receive Date: 20120820
  Receipt Date: 19930318
  Transmission Date: 20120928
  Serious: Yes (Other)
  Sender: FDA-Public Use
  Company Number: US-ROCHE-1100428

PATIENT
  Age: 54 Year
  Sex: Male

DRUGS (1)
  1. ACTIVASE [Suspect]
     Indication: ACUTE MYOCARDIAL INFARCTION
     Route: 042

REACTIONS (4)
  - CHEST PAIN [None]
  - BLOOD CREATINE PHOSPHOKINASE INCREASED [None]
  - BELLIGERENCE [None]
  - BLOOD PRESSURE INCREASED [None]
